FAERS Safety Report 5794000-7 (Version None)
Quarter: 2008Q2

REPORT INFORMATION
  Report Type: 
  Country: None (occurrence: None)
  Receive Date: 20080627
  Receipt Date: 20080616
  Transmission Date: 20081010
  Serious: Yes (Hospitalization, Other)
  Sender: FDA-Public Use
  Company Number: US-PFIZER INC-2008050690

PATIENT
  Sex: Female
  Weight: 56.7 kg

DRUGS (9)
  1. DILANTIN [Suspect]
     Indication: CRANIOTOMY
     Dosage: FREQ:DAILY
  2. NEURONTIN [Suspect]
  3. PHENYTOIN [Suspect]
  4. PREMARIN [Concomitant]
  5. VITAMINS [Concomitant]
  6. FOLIC ACID [Concomitant]
  7. CALCIUM [Concomitant]
  8. POTASSIUM CHLORIDE [Concomitant]
  9. LASIX [Concomitant]

REACTIONS (9)
  - BODY HEIGHT DECREASED [None]
  - CARDIAC FAILURE CONGESTIVE [None]
  - CONVULSION [None]
  - DRUG LEVEL DECREASED [None]
  - LOWER LIMB FRACTURE [None]
  - MALAISE [None]
  - OSTEOPOROSIS [None]
  - PERICARDIAL EFFUSION [None]
  - RIB FRACTURE [None]
